FAERS Safety Report 17484368 (Version 4)
Quarter: 2020Q4

REPORT INFORMATION
  Report Type: Spontaneous
  Country: US (occurrence: US)
  Receive Date: 20200302
  Receipt Date: 20201208
  Transmission Date: 20210113
  Serious: Yes (Other)
  Sender: FDA-Public Use
  Company Number: US-GILEAD-2020-0452914

PATIENT
  Age: 53 Year
  Sex: Male
  Weight: 65.76 kg

DRUGS (43)
  1. COMBIVIR [Concomitant]
     Active Substance: LAMIVUDINE\ZIDOVUDINE
  2. EPIVIR [Concomitant]
     Active Substance: LAMIVUDINE
  3. INTELENCE [Concomitant]
     Active Substance: ETRAVIRINE
  4. NORVIR [Concomitant]
     Active Substance: RITONAVIR
  5. COREG [Concomitant]
     Active Substance: CARVEDILOL
  6. METOPROLOL. [Concomitant]
     Active Substance: METOPROLOL
  7. VIGAMOX [Concomitant]
     Active Substance: MOXIFLOXACIN HYDROCHLORIDE
  8. LANSOPRAZOLE. [Concomitant]
     Active Substance: LANSOPRAZOLE
  9. TIVICAY [Concomitant]
     Active Substance: DOLUTEGRAVIR SODIUM
  10. ATENOLOL. [Concomitant]
     Active Substance: ATENOLOL
  11. TERAZOSIN [Concomitant]
     Active Substance: TERAZOSIN HYDROCHLORIDE
  12. NAPROZEN [Concomitant]
     Active Substance: NAPROXEN
  13. MEGESTROL [Concomitant]
     Active Substance: MEGESTROL
  14. ALENDRONATE [Concomitant]
     Active Substance: ALENDRONATE SODIUM
  15. AMOXICILLIN. [Concomitant]
     Active Substance: AMOXICILLIN
  16. TRIFLURIDINE. [Concomitant]
     Active Substance: TRIFLURIDINE
  17. AMITRIPTYLINE [Concomitant]
     Active Substance: AMITRIPTYLINE
  18. DIURIL [CHLOROTHIAZIDE SODIUM] [Concomitant]
  19. ACETAMINOPHEN;HYDROCODONE [Concomitant]
     Active Substance: ACETAMINOPHEN\HYDROCODONE
  20. IBUPROFEN. [Concomitant]
     Active Substance: IBUPROFEN
  21. ETODOLAC. [Concomitant]
     Active Substance: ETODOLAC
  22. TRAMADOL. [Concomitant]
     Active Substance: TRAMADOL
  23. ALBUTEROL [SALBUTAMOL] [Concomitant]
     Active Substance: ALBUTEROL
  24. REYATAZ [Concomitant]
     Active Substance: ATAZANAVIR SULFATE
  25. DIURIL [CHLOROTHIAZIDE] [Concomitant]
  26. LANZOPRAZOL [Concomitant]
     Active Substance: LANSOPRAZOLE
  27. ZERIT [Concomitant]
     Active Substance: STAVUDINE
  28. PENICILLIN NOS [Concomitant]
     Active Substance: PENICILLIN
  29. PRAVASTATIN. [Concomitant]
     Active Substance: PRAVASTATIN
  30. ISENTRESS [Concomitant]
     Active Substance: RALTEGRAVIR POTASSIUM
  31. VIRAMUNE [Concomitant]
     Active Substance: NEVIRAPINE
  32. PEG 3350 [Concomitant]
     Active Substance: POLYETHYLENE GLYCOL 3350
  33. TERBINAFINE. [Concomitant]
     Active Substance: TERBINAFINE
  34. VIREAD [Suspect]
     Active Substance: TENOFOVIR DISOPROXIL FUMARATE
     Indication: HIV INFECTION
     Dosage: UNK
     Route: 048
     Dates: start: 20110126, end: 20160112
  35. EPZICOM [Concomitant]
     Active Substance: ABACAVIR SULFATE\LAMIVUDINE
  36. NORVASC [Concomitant]
     Active Substance: AMLODIPINE BESYLATE
  37. CHLORHEXIDINE [Concomitant]
     Active Substance: CHLORHEXIDINE
  38. CYCLOBENZAPRINE. [Concomitant]
     Active Substance: CYCLOBENZAPRINE
  39. FLUCONAZOLE. [Concomitant]
     Active Substance: FLUCONAZOLE
  40. EVOTAZ [Concomitant]
     Active Substance: ATAZANAVIR SULFATE\COBICISTAT
  41. PREZCOBIX [Concomitant]
     Active Substance: COBICISTAT\DARUNAVIR ETHANOLATE
  42. TRUVADA [Suspect]
     Active Substance: EMTRICITABINE\TENOFOVIR DISOPROXIL FUMARATE
     Indication: HIV INFECTION
     Dosage: UNK
     Route: 048
     Dates: start: 20110109, end: 20110125
  43. ACETAMINOPHEN. [Concomitant]
     Active Substance: ACETAMINOPHEN

REACTIONS (17)
  - Chronic kidney disease [Not Recovered/Not Resolved]
  - Fracture [Unknown]
  - Bone density decreased [Unknown]
  - Osteoporosis [Not Recovered/Not Resolved]
  - Osteopenia [Not Recovered/Not Resolved]
  - Hyperparathyroidism secondary [Recovered/Resolved]
  - Anhedonia [Unknown]
  - Anxiety [Unknown]
  - Hypophosphataemia [Not Recovered/Not Resolved]
  - Economic problem [Unknown]
  - Pain [Unknown]
  - Emotional distress [Unknown]
  - Stress fracture [Recovered/Resolved]
  - Rib fracture [Recovered/Resolved]
  - Renal tubular disorder [Not Recovered/Not Resolved]
  - Osteomalacia [Recovered/Resolved]
  - Renal failure [Not Recovered/Not Resolved]

NARRATIVE: CASE EVENT DATE: 20120718
